FAERS Safety Report 8291656-4 (Version None)
Quarter: 2012Q2

REPORT INFORMATION
  Report Type: 
  Country: None (occurrence: None)
  Receive Date: 20120417
  Receipt Date: 20120106
  Transmission Date: 20120825
  Serious: No
  Sender: FDA-Public Use
  Company Number: US-ASTRAZENECA-2011SE11655

PATIENT
  Age: 675 Month
  Sex: Female

DRUGS (2)
  1. NEXIUM [Suspect]
     Route: 048
  2. RHINOCORT [Suspect]
     Route: 045

REACTIONS (4)
  - MALAISE [None]
  - YELLOW SKIN [None]
  - ABDOMINAL PAIN UPPER [None]
  - DYSPNOEA [None]
